FAERS Safety Report 6867227-0 (Version None)
Quarter: 2010Q3

REPORT INFORMATION
  Report Type: 
  Country: None (occurrence: None)
  Receive Date: 20100722
  Receipt Date: 20100715
  Transmission Date: 20110219
  Serious: Yes (Hospitalization)
  Sender: FDA-Public Use
  Company Number: B0666565A

PATIENT
  Sex: Female

DRUGS (6)
  1. TALAVIR [Suspect]
     Indication: HERPES ZOSTER
     Route: 048
     Dates: start: 20100701, end: 20100705
  2. AMITRIPTYLINE HCL [Suspect]
     Indication: DEPRESSION
     Dosage: 10DROP PER DAY
     Route: 048
     Dates: start: 20100705
  3. AMITRIPTYLINE HCL [Suspect]
     Dosage: 15DROP PER DAY
     Route: 048
     Dates: start: 20100702
  4. LOBIVON [Suspect]
     Indication: HYPERTENSION
     Dosage: 2.5MG PER DAY
     Route: 048
     Dates: start: 20100705
  5. LORAZEPAM [Suspect]
     Indication: PRODUCT USED FOR UNKNOWN INDICATION
     Dosage: 7.5MG PER DAY
     Route: 048
     Dates: start: 20100705
  6. MUTABON [Suspect]
     Indication: PRODUCT USED FOR UNKNOWN INDICATION
     Dosage: 29MG THREE TIMES PER DAY
     Route: 048
     Dates: start: 20100705

REACTIONS (4)
  - HYPOTENSION [None]
  - PALPITATIONS [None]
  - SOMNOLENCE [None]
  - SYNCOPE [None]
